FAERS Safety Report 7018802-4 (Version None)
Quarter: 2010Q3

REPORT INFORMATION
  Report Type: 
  Country: None (occurrence: None)
  Receive Date: 20100928
  Receipt Date: 20100922
  Transmission Date: 20110219
  Serious: Yes (Hospitalization, Other)
  Sender: FDA-Public Use
  Company Number: US-PFIZER INC-2010088448

PATIENT
  Sex: Female
  Weight: 80 kg

DRUGS (5)
  1. ATGAM [Suspect]
     Indication: APLASTIC ANAEMIA
     Dosage: 3200 MG DAILY
     Route: 042
     Dates: start: 20100517, end: 20100520
  2. SOLIRIS [Suspect]
     Indication: APLASTIC ANAEMIA
     Dosage: 900MG EVERY 14 DAYS
     Route: 042
     Dates: start: 20100201
  3. CYCLOSPORINE [Suspect]
     Indication: APLASTIC ANAEMIA
     Dosage: 200MG TWICE DAILY
     Route: 048
     Dates: start: 20100517, end: 20100605
  4. PREDNISONE [Concomitant]
     Dosage: UNK
     Dates: end: 20100602
  5. SOLU-MEDROL [Concomitant]
     Indication: IMMUNOSUPPRESSANT DRUG THERAPY
     Dosage: 60MG, 2X/DAY, FOR 8 DOSE
     Route: 042
     Dates: start: 20100517

REACTIONS (10)
  - BLOOD LACTATE DEHYDROGENASE INCREASED [None]
  - DYSSTASIA [None]
  - GAIT DISTURBANCE [None]
  - HYPERAESTHESIA [None]
  - NEURALGIA [None]
  - PAIN IN EXTREMITY [None]
  - PLATELET COUNT DECREASED [None]
  - POST TRANSPLANT DISTAL LIMB SYNDROME [None]
  - SERUM SICKNESS [None]
  - SPINAL DEFORMITY [None]
